FAERS Safety Report 8882332 (Version 1)
Quarter: 2012Q4

REPORT INFORMATION
  Report Type: 
  Country: RO (occurrence: RO)
  Receive Date: 20121105
  Receipt Date: 20121105
  Transmission Date: 20130627
  Serious: Yes (Other)
  Sender: FDA-Public Use
  Company Number: RO-JNJFOC-20121013429

PATIENT

DRUGS (2)
  1. INFLIXIMAB, RECOMBINANT [Suspect]
     Indication: RHEUMATOID ARTHRITIS
     Route: 042
  2. METHOTREXATE [Concomitant]
     Indication: RHEUMATOID ARTHRITIS
     Route: 065

REACTIONS (2)
  - Cardiovascular disorder [Unknown]
  - Drug ineffective [Unknown]
